FAERS Safety Report 5093678-3 (Version None)
Quarter: 2006Q3

REPORT INFORMATION
  Report Type: 
  Country: None (occurrence: None)
  Receive Date: 20060829
  Receipt Date: 20060817
  Transmission Date: 20061208
  Serious: Yes (Hospitalization)
  Sender: FDA-Public Use
  Company Number: 228931

PATIENT
  Age: 68 Year
  Sex: Male
  Weight: 81.5 kg

DRUGS (3)
  1. AVASTIN [Suspect]
     Indication: BLADDER CANCER
     Dosage: 1260 MG, DAYS 1+22, INTRAVENOUS
     Route: 042
     Dates: start: 20060712
  2. CISPLATIN [Suspect]
     Indication: BLADDER CANCER
     Dosage: 102 MG, DAYS 1+22, INTRAVENOUS
     Route: 042
  3. GEMCITABINE (CEMCITABINE HYDROCHLORIDE) [Suspect]
     Indication: BLADDER CANCER
     Dosage: 1656 MG, DAY 1+8/Q3W, INTRAVENOUS
     Route: 042
     Dates: start: 20060812

REACTIONS (1)
  - FEBRILE NEUTROPENIA [None]
